FAERS Safety Report 8599632-9 (Version None)
Quarter: 2012Q3

REPORT INFORMATION
  Report Type: 
  Country: None (occurrence: None)
  Receive Date: 20120816
  Receipt Date: 20120810
  Transmission Date: 20120928
  Serious: Yes (Other)
  Sender: FDA-Public Use
  Company Number: US-PFIZER INC-2012182913

PATIENT
  Sex: Female

DRUGS (3)
  1. LYRICA [Suspect]
     Dosage: UNK, 2X/DAY
  2. LYRICA [Suspect]
     Indication: PAIN
     Dosage: 50 MG, 2X/DAY
     Route: 048
     Dates: start: 20120716, end: 20120716
  3. METFORMIN [Concomitant]
     Indication: DIABETES MELLITUS
     Dosage: UNK

REACTIONS (12)
  - DIZZINESS [None]
  - RESTLESSNESS [None]
  - GAIT DISTURBANCE [None]
  - DYSURIA [None]
  - ASTHENIA [None]
  - FEELING ABNORMAL [None]
  - NAUSEA [None]
  - DRY MOUTH [None]
  - CONFUSIONAL STATE [None]
  - DISTURBANCE IN ATTENTION [None]
  - SOMNOLENCE [None]
  - VISION BLURRED [None]
